FAERS Safety Report 21801773 (Version 2)
Quarter: 2025Q1

REPORT INFORMATION
  Report Type: Spontaneous
  Country: NL (occurrence: NL)
  Receive Date: 20221230
  Receipt Date: 20250128
  Transmission Date: 20250409
  Serious: Yes (Life-Threatening, Disabling)
  Sender: TEVA
  Company Number: None

PATIENT
  Age: 41 Year
  Sex: Male
  Weight: 80 kg

DRUGS (1)
  1. PALIPERIDONE [Suspect]
     Active Substance: PALIPERIDONE
     Indication: Psychotic disorder
     Dosage: DOSAGE TEXT: 1 X PER MONTH, INJ USP, BRAND NAME NOT SPECIFIED
     Route: 065
     Dates: start: 20220401

REACTIONS (2)
  - Suicidal ideation [Recovering/Resolving]
  - Epilepsy [Recovering/Resolving]
